FAERS Safety Report 22071550 (Version 1)
Quarter: 2023Q1

REPORT INFORMATION
  Report Type: Spontaneous
  Country: US (occurrence: US)
  Receive Date: 20230307
  Receipt Date: 20230307
  Transmission Date: 20230418
  Serious: Yes (Other)
  Sender: FDA-Public Use
  Company Number: US-TEVA-2023-US-2862577

PATIENT
  Age: 58 Year
  Sex: Female

DRUGS (1)
  1. CLONAZEPAM [Suspect]
     Active Substance: CLONAZEPAM
     Indication: Product used for unknown indication
     Dosage: 1 MILLIGRAM
     Route: 065

REACTIONS (6)
  - Throat tightness [Unknown]
  - Headache [Unknown]
  - Migraine [Unknown]
  - Anxiety [Unknown]
  - Panic disorder [Unknown]
  - Sinus disorder [Unknown]
